FAERS Safety Report 4749588-1 (Version None)
Quarter: 2005Q3

REPORT INFORMATION
  Report Type: 
  Country: None (occurrence: None)
  Receive Date: 20050822
  Receipt Date: 20050812
  Transmission Date: 20060218
  Serious: Yes (Other)
  Sender: FDA-Public Use
  Company Number: AU-GLAXOSMITHKLINE-B0391080A

PATIENT
  Sex: Male

DRUGS (5)
  1. IMIGRAN [Suspect]
     Indication: MIGRAINE
     Route: 045
  2. LEXAPRO [Concomitant]
     Dosage: 30MG PER DAY
     Route: 065
  3. SANDOMIGRAN [Concomitant]
     Dosage: .25MG PER DAY
     Route: 065
  4. INDERAL [Concomitant]
     Dosage: 40MG PER DAY
     Route: 065
  5. BACLOFEN [Concomitant]
     Dosage: 60MG PER DAY
     Route: 065

REACTIONS (4)
  - DEVICE MALFUNCTION [None]
  - DRUG INEFFECTIVE [None]
  - MIGRAINE [None]
  - PHARMACEUTICAL PRODUCT COMPLAINT [None]
